FAERS Safety Report 4931543-X (Version None)
Quarter: 2006Q1

REPORT INFORMATION
  Report Type: 
  Country: None (occurrence: None)
  Receive Date: 20060303
  Receipt Date: 20060220
  Transmission Date: 20060701
  Serious: Yes (Hospitalization)
  Sender: FDA-Public Use
  Company Number: FR-BRISTOL-MYERS SQUIBB COMPANY-13290408

PATIENT
  Age: 83 Year
  Sex: Female

DRUGS (6)
  1. COUMADIN [Suspect]
     Route: 048
     Dates: end: 20051205
  2. ALDACTAZINE [Suspect]
  3. VASTAREL [Suspect]
  4. KARDEGIC [Suspect]
  5. ARIMIDEX [Suspect]
  6. ESBERIVEN FORT [Suspect]

REACTIONS (2)
  - ANAEMIA [None]
  - OESOPHAGITIS [None]
